FAERS Safety Report 25545363 (Version 1)
Quarter: 2025Q3

REPORT INFORMATION
  Report Type: Spontaneous
  Country: AU (occurrence: AU)
  Receive Date: 20250711
  Receipt Date: 20250711
  Transmission Date: 20251021
  Serious: Yes (Death)
  Sender: NOVARTIS
  Company Number: AU-002147023-NVSC2024AU180852

PATIENT

DRUGS (1)
  1. KYMRIAH [Suspect]
     Active Substance: TISAGENLECLEUCEL
     Indication: Diffuse large B-cell lymphoma
     Dosage: 1 DOSAGE FORM, QD
     Route: 042
     Dates: start: 20230712, end: 20230712

REACTIONS (3)
  - Malignant neoplasm progression [Fatal]
  - Diffuse large B-cell lymphoma [Fatal]
  - Therapeutic response decreased [Unknown]
